FAERS Safety Report 14750083 (Version 1)
Quarter: 2018Q2

REPORT INFORMATION
  Report Type: Spontaneous
  Country: US (occurrence: US)
  Receive Date: 20180412
  Receipt Date: 20180412
  Transmission Date: 20180711
  Serious: No
  Sender: FDA-Public Use
  Company Number: US-ACCORD-062453

PATIENT
  Age: 61 Year
  Sex: Male

DRUGS (3)
  1. SIMVASTATIN ACCORD [Suspect]
     Active Substance: SIMVASTATIN
     Indication: BLOOD TRIGLYCERIDES INCREASED
     Route: 048
     Dates: start: 20171106, end: 20171212
  2. LISINOPRIL. [Concomitant]
     Active Substance: LISINOPRIL
     Indication: SPINAL COLUMN STENOSIS
  3. NAPROXEN. [Concomitant]
     Active Substance: NAPROXEN
     Indication: SPINAL COLUMN STENOSIS

REACTIONS (8)
  - Heart rate irregular [Not Recovered/Not Resolved]
  - Abdominal pain upper [Not Recovered/Not Resolved]
  - Abdominal distension [Not Recovered/Not Resolved]
  - Constipation [Not Recovered/Not Resolved]
  - Chest discomfort [Not Recovered/Not Resolved]
  - Muscle spasms [Not Recovered/Not Resolved]
  - Wheezing [Not Recovered/Not Resolved]
  - Palpitations [Not Recovered/Not Resolved]
